FAERS Safety Report 20719022 (Version 2)
Quarter: 2025Q4

REPORT INFORMATION
  Report Type: Spontaneous
  Country: EU (occurrence: EU)
  Receive Date: 20220418
  Receipt Date: 20251209
  Transmission Date: 20260117
  Serious: Yes (Hospitalization)
  Sender: SANOFI AVENTIS
  Company Number: None

PATIENT
  Age: 18 Year
  Sex: Male
  Weight: 49 kg

DRUGS (12)
  1. RIFATER [Suspect]
     Active Substance: ISONIAZID\PYRAZINAMIDE\RIFAMPIN
     Indication: Pulmonary tuberculosis
     Dosage: 4 TABLETS IN THE MORNING, EVERY DAY
     Route: 048
     Dates: start: 20220114, end: 20220205
  2. RIFATER [Suspect]
     Active Substance: ISONIAZID\PYRAZINAMIDE\RIFAMPIN
     Dosage: 5 TABLETS IN THE MORNING, EVERY DAY
     Route: 048
     Dates: start: 20220205, end: 20220315
  3. RIFANDINE [Concomitant]
     Indication: Pulmonary tuberculosis
     Dosage: 300 MG
     Route: 048
     Dates: start: 20220305, end: 20220323
  4. RIFANDINE [Concomitant]
     Dosage: 600 MG
     Route: 048
     Dates: start: 20220323
  5. THIAMINE HYDROCHLORIDE [Concomitant]
     Active Substance: THIAMINE HYDROCHLORIDE
     Indication: Vitamin supplementation
     Dosage: 500 MG
     Route: 042
     Dates: start: 20220113, end: 20220117
  6. ALLOPURINOL [Concomitant]
     Active Substance: ALLOPURINOL
     Indication: Hyperuricaemia
     Dosage: 100 MG
     Route: 048
     Dates: start: 20220216, end: 20220306
  7. COLCHICINE [Concomitant]
     Active Substance: COLCHICINE
     Indication: Gouty arthritis
     Dosage: 1 MG , Q12H MORNING AND EVENING
     Route: 048
     Dates: start: 20220223, end: 20220315
  8. COLCHICINE [Concomitant]
     Active Substance: COLCHICINE
     Dosage: 0.5 MG , Q12H MORNING AND EVENING
     Route: 048
     Dates: start: 20220210, end: 20220223
  9. PYRIDOXINE\THIAMINE [Concomitant]
     Active Substance: PYRIDOXINE\THIAMINE
     Indication: Vitamin supplementation
     Dosage: 3 DF
     Route: 048
     Dates: start: 20220117
  10. MAGNESIUM PIDOLATE [Concomitant]
     Active Substance: MAGNESIUM PIDOLATE
     Indication: Mineral supplementation
  11. PYRIDOXINE HYDROCHLORIDE [Concomitant]
     Active Substance: PYRIDOXINE HYDROCHLORIDE
     Indication: Vitamin supplementation
     Dosage: 250 MG
     Route: 042
     Dates: start: 20220113, end: 20220117
  12. ETHAMBUTOL HYDROCHLORIDE [Concomitant]
     Active Substance: ETHAMBUTOL HYDROCHLORIDE
     Indication: Pulmonary tuberculosis
     Dosage: 1000 MG
     Route: 048
     Dates: start: 20220114, end: 20220315

REACTIONS (1)
  - Gouty arthritis [Recovered/Resolved]

NARRATIVE: CASE EVENT DATE: 20220210
